FAERS Safety Report 5208620-1 (Version None)
Quarter: 2007Q1

REPORT INFORMATION
  Report Type: 
  Country: None (occurrence: None)
  Receive Date: 20070116
  Receipt Date: 20070110
  Transmission Date: 20070707
  Serious: Yes (Death)
  Sender: FDA-Public Use
  Company Number: PHMT2006CA02342

PATIENT
  Age: 57 Year
  Sex: Male

DRUGS (2)
  1. CLOZARIL [Suspect]
     Indication: SCHIZOPHRENIA
     Dosage: 450 MG, QHS
     Route: 048
     Dates: start: 19981201, end: 20061228
  2. CLOZARIL [Suspect]
     Dosage: OVERDOSED ON ONE WEEK SUPPLY OF CLOZARIL
     Dates: start: 20061228, end: 20061228

REACTIONS (1)
  - MULTIPLE DRUG OVERDOSE [None]
